FAERS Safety Report 26203540 (Version 1)
Quarter: 2025Q4

REPORT INFORMATION
  Report Type: Spontaneous
  Country: US (occurrence: US)
  Receive Date: 20251226
  Receipt Date: 20251226
  Transmission Date: 20260119
  Serious: Yes (Death, Life-Threatening, Hospitalization, Other)
  Sender: LUPIN
  Company Number: US-LUPIN PHARMACEUTICALS INC.-2025-11660

PATIENT
  Age: 57 Year
  Sex: Female

DRUGS (1)
  1. BUPROPION [Suspect]
     Active Substance: BUPROPION
     Indication: Depression
     Dosage: 12 GM, (EXTENDED RELEASE)
     Route: 065

REACTIONS (17)
  - Intentional product misuse [Fatal]
  - Intentional overdose [Fatal]
  - Toxicity to various agents [Fatal]
  - Seizure [Fatal]
  - Hypoxia [Fatal]
  - Cardiogenic shock [Fatal]
  - Metabolic acidosis [Fatal]
  - Shock [Fatal]
  - Toxic cardiomyopathy [Fatal]
  - Ventricular tachycardia [Fatal]
  - Electrocardiogram QT prolonged [Fatal]
  - Circulatory collapse [Fatal]
  - Respiratory arrest [Fatal]
  - Cardiac arrest [Fatal]
  - Aortic dissection [Fatal]
  - Coronary artery disease [Fatal]
  - Shock [Fatal]
